FAERS Safety Report 6686882-1 (Version None)
Quarter: 2010Q2

REPORT INFORMATION
  Report Type: 
  Country: None (occurrence: None)
  Receive Date: 20100416
  Receipt Date: 20100416
  Transmission Date: 20101027
  Serious: No
  Sender: FDA-Public Use
  Company Number: None

PATIENT
  Sex: Male
  Weight: 74.8435 kg

DRUGS (4)
  1. PLAVIX [Suspect]
     Indication: CARDIOVASCULAR DISORDER
  2. PLAVIX [Suspect]
     Indication: RASH
  3. KETOCONAZOLE [Suspect]
     Indication: DRUG ERUPTION
  4. PLETAL [Suspect]
     Indication: CARDIOVASCULAR DISORDER

REACTIONS (7)
  - ANAL FUNGAL INFECTION [None]
  - GENITAL INFECTION FUNGAL [None]
  - PRURITUS [None]
  - RASH [None]
  - SKIN BURNING SENSATION [None]
  - SKIN EXFOLIATION [None]
  - SKIN ULCER [None]
